FAERS Safety Report 7809099-3 (Version None)
Quarter: 2011Q4

REPORT INFORMATION
  Report Type: 
  Country: None (occurrence: None)
  Receive Date: 20111012
  Receipt Date: 20111005
  Transmission Date: 20120403
  Serious: Yes (Other)
  Sender: FDA-Public Use
  Company Number: US-JNJFOC-20111001539

PATIENT
  Sex: Female

DRUGS (1)
  1. NICORETTE [Suspect]
     Indication: SMOKING CESSATION THERAPY
     Route: 065
     Dates: start: 20040101

REACTIONS (3)
  - NICOTINE DEPENDENCE [None]
  - INTENTIONAL DRUG MISUSE [None]
  - PRODUCT QUALITY ISSUE [None]
